FAERS Safety Report 10382874 (Version 4)
Quarter: 2015Q2

REPORT INFORMATION
  Report Type: Report from Study
  Country: US (occurrence: US)
  Receive Date: 20140813
  Receipt Date: 20150622
  Transmission Date: 20150821
  Serious: Yes (Death, Hospitalization, Other)
  Sender: FDA-Public Use
  Company Number: US-SA-2014SA005462

PATIENT
  Age: 41 Year
  Sex: Male

DRUGS (3)
  1. TYLENOL [Concomitant]
     Active Substance: ACETAMINOPHEN
     Indication: PREMEDICATION
  2. FABRAZYME [Suspect]
     Active Substance: AGALSIDASE BETA
     Indication: FABRY^S DISEASE
     Route: 042
     Dates: start: 2013
  3. ALLEGRA [Concomitant]
     Active Substance: FEXOFENADINE HYDROCHLORIDE
     Indication: PREMEDICATION

REACTIONS (15)
  - Loss of consciousness [Unknown]
  - Death [Fatal]
  - Arrhythmia [Unknown]
  - Delirium [Unknown]
  - Hypotension [Unknown]
  - Hallucination [Unknown]
  - Dehydration [Recovered/Resolved]
  - Escherichia infection [Recovering/Resolving]
  - Fall [Unknown]
  - Endotracheal intubation [Unknown]
  - Back pain [Unknown]
  - Vertigo [Not Recovered/Not Resolved]
  - Dizziness [Not Recovered/Not Resolved]
  - Unresponsive to stimuli [Unknown]
  - Peritonitis [Recovering/Resolving]

NARRATIVE: CASE EVENT DATE: 2013
